FAERS Safety Report 8986680 (Version 1)
Quarter: 2012Q4

REPORT INFORMATION
  Report Type: Spontaneous
  Country: US (occurrence: None)
  Receive Date: 20121109
  Receipt Date: 20121109
  Transmission Date: 20130627
  Serious: Yes (Hospitalization)
  Sender: FDA-Public Use
  Company Number: 2012S1000342

PATIENT
  Age: 73 Year
  Sex: Male

DRUGS (3)
  1. CUBICIN [Suspect]
     Indication: STAPHYLOCOCCAL BACTEREMIA
     Dates: end: 20040312
  2. LYRICA [Concomitant]
  3. SIMVASTATIN [Concomitant]

REACTIONS (1)
  - Blood creatine phosphokinase increased [None]
